FAERS Safety Report 16035629 (Version 2)
Quarter: 2019Q1

REPORT INFORMATION
  Report Type: Spontaneous
  Country: IT (occurrence: IT)
  Receive Date: 20190305
  Receipt Date: 20190320
  Transmission Date: 20190418
  Serious: Yes (Other)
  Sender: FDA-Public Use
  Company Number: IT-PFIZER INC-2019095462

PATIENT
  Age: 50 Year
  Sex: Female
  Weight: 74 kg

DRUGS (1)
  1. IBRANCE [Suspect]
     Active Substance: PALBOCICLIB
     Indication: BREAST NEOPLASM
     Dosage: 125 MG, CYCLIC
     Route: 048
     Dates: start: 20190115, end: 20190131

REACTIONS (3)
  - Nausea [Recovering/Resolving]
  - Vomiting [Recovering/Resolving]
  - Bone marrow toxicity [Recovering/Resolving]

NARRATIVE: CASE EVENT DATE: 20190131
